FAERS Safety Report 8053591-6 (Version None)
Quarter: 2012Q1

REPORT INFORMATION
  Report Type: 
  Country: None (occurrence: None)
  Receive Date: 20120118
  Receipt Date: 20120113
  Transmission Date: 20120608
  Serious: Yes (Hospitalization, Other)
  Sender: FDA-Public Use
  Company Number: US-MERCK-1105USA03183

PATIENT
  Age: 77 Year
  Sex: Male

DRUGS (30)
  1. VICODIN [Concomitant]
     Indication: BACK PAIN
     Route: 065
  2. CARDIZEM CD [Concomitant]
     Route: 065
  3. LEVOTHYROXINE SODIUM [Concomitant]
     Route: 065
  4. UBIDECARENONE [Concomitant]
     Route: 065
  5. ZANTAC [Concomitant]
     Indication: GASTRIC DISORDER
     Route: 065
     Dates: start: 19800101
  6. SIMVASTATIN [Concomitant]
     Route: 048
  7. LOTREL [Concomitant]
     Route: 065
  8. VITAMINS (UNSPECIFIED) [Concomitant]
     Route: 065
  9. PREVACID [Concomitant]
     Route: 065
  10. HYDROCHLOROTHIAZIDE [Concomitant]
     Route: 048
  11. ALENDRONATE SODIUM [Suspect]
     Indication: OSTEOPOROSIS
     Route: 048
     Dates: start: 20030101
  12. ACTOS [Concomitant]
     Route: 065
  13. OMEGA-3 MARINE TRIGLYCERIDES [Concomitant]
     Route: 065
  14. LISINOPRIL [Concomitant]
     Route: 048
  15. FOLIC ACID [Concomitant]
     Route: 065
  16. OXYBUTYNIN CHLORIDE [Concomitant]
     Route: 065
  17. COREG [Concomitant]
     Route: 065
  18. OXYGEN [Concomitant]
     Dosage: 3 LITERS
     Route: 065
  19. CORTICOSTEROIDS (UNSPECIFIED) [Concomitant]
     Route: 065
  20. [THERAPY UNSPECIFIED] [Concomitant]
     Indication: HYPERTENSION
     Route: 065
  21. [THERAPY UNSPECIFIED] [Concomitant]
     Indication: BLOOD CHOLESTEROL INCREASED
     Route: 065
  22. ISOSORBIDE MONONITRATE [Concomitant]
     Route: 065
  23. PLAVIX [Concomitant]
     Route: 065
  24. CHONDROITIN SULFATE SODIUM AND GLUCOSAMINE SULFATE [Concomitant]
     Route: 065
  25. ACETAMINOPHEN AND HYDROCODONE BITARTRATE [Concomitant]
     Route: 065
  26. FOSAMAX [Suspect]
     Indication: OSTEOPOROSIS
     Route: 048
     Dates: start: 20030101, end: 20030201
  27. FOSAMAX [Suspect]
     Route: 065
     Dates: start: 20090301, end: 20090501
  28. NIACIN [Concomitant]
     Route: 065
  29. SYNTHROID [Concomitant]
     Route: 065
  30. MAGNESIUM (UNSPECIFIED) [Concomitant]
     Route: 065

REACTIONS (54)
  - CHRONIC OBSTRUCTIVE PULMONARY DISEASE [None]
  - INTERVERTEBRAL DISC DEGENERATION [None]
  - DRUG ADMINISTRATION ERROR [None]
  - DIARRHOEA [None]
  - PERIODONTITIS [None]
  - INSOMNIA [None]
  - ARTERIAL OCCLUSIVE DISEASE [None]
  - ARRHYTHMIA [None]
  - EYE DISORDER [None]
  - DRUG HYPERSENSITIVITY [None]
  - DIVERTICULUM [None]
  - TEMPOROMANDIBULAR JOINT SYNDROME [None]
  - INFLUENZA [None]
  - RENAL FAILURE CHRONIC [None]
  - ANGINA PECTORIS [None]
  - EXOSTOSIS [None]
  - STAPHYLOCOCCAL INFECTION [None]
  - RASH [None]
  - CARDIOVASCULAR DISORDER [None]
  - OSTEONECROSIS OF JAW [None]
  - NEUROGENIC BLADDER [None]
  - DIABETES MELLITUS [None]
  - PERIPHERAL ARTERIAL OCCLUSIVE DISEASE [None]
  - MOUTH ULCERATION [None]
  - SPONDYLITIS [None]
  - SPINAL COLUMN STENOSIS [None]
  - MALAISE [None]
  - BONE LOSS [None]
  - CORONARY ARTERY DISEASE [None]
  - OSTEOMYELITIS CHRONIC [None]
  - ANXIETY [None]
  - FATIGUE [None]
  - PNEUMONIA [None]
  - ORAL INFECTION [None]
  - LUNG INFECTION [None]
  - GINGIVAL PAIN [None]
  - INTERMITTENT CLAUDICATION [None]
  - SLEEP APNOEA SYNDROME [None]
  - TOOTH FRACTURE [None]
  - RETINAL TEAR [None]
  - RENAL CYST [None]
  - ADVERSE DRUG REACTION [None]
  - NOCTURIA [None]
  - ORAL TORUS [None]
  - VERTEBRAL FORAMINAL STENOSIS [None]
  - SPERMATOCELE [None]
  - CHEST PAIN [None]
  - PROSTATE CANCER [None]
  - EMPHYSEMA [None]
  - AORTIC DISORDER [None]
  - STOMATITIS [None]
  - HERPES ZOSTER [None]
  - GASTROOESOPHAGEAL REFLUX DISEASE [None]
  - FLANK PAIN [None]
